FAERS Safety Report 6081482-9 (Version None)
Quarter: 2009Q1

REPORT INFORMATION
  Report Type: 
  Country: None (occurrence: None)
  Receive Date: 20090213
  Receipt Date: 20090127
  Transmission Date: 20090719
  Serious: Yes (Death)
  Sender: FDA-Public Use
  Company Number: 8042440

PATIENT
  Age: 49 Year
  Sex: Female

DRUGS (5)
  1. PREDNISOLONE [Suspect]
     Indication: IMMUNOSUPPRESSION
     Dosage: /D;
  2. PREDNISOLONE [Suspect]
     Indication: IMMUNOSUPPRESSION
     Dosage: 20 MG /D
  3. BASILIXIMAB [Suspect]
     Indication: IMMUNOSUPPRESSION
     Dosage: 20 MG,
  4. CYCLOSPORINE [Suspect]
     Indication: IMMUNOSUPPRESSION
     Dosage: 250 MG 2/D
  5. MYCOPHENOLATE MOFETIL [Suspect]
     Indication: IMMUNOSUPPRESSION
     Dosage: 500 MG 3/D

REACTIONS (18)
  - ACUTE HEPATIC FAILURE [None]
  - COMPLICATIONS OF TRANSPLANTED LIVER [None]
  - CONFUSIONAL STATE [None]
  - DISSEMINATED INTRAVASCULAR COAGULATION [None]
  - HISTIOCYTOSIS HAEMATOPHAGIC [None]
  - HUMAN HERPESVIRUS 6 INFECTION [None]
  - HYPONATRAEMIA [None]
  - HYPOXIA [None]
  - LEUKOPENIA [None]
  - LIVER TRANSPLANT [None]
  - LUNG INFILTRATION [None]
  - MACROPHAGE ACTIVATION [None]
  - MULTI-ORGAN FAILURE [None]
  - PYREXIA [None]
  - RASH [None]
  - RENAL FAILURE ACUTE [None]
  - RENAL TRANSPLANT [None]
  - THROMBOCYTOPENIA [None]
